FAERS Safety Report 12790610 (Version 1)
Quarter: 2016Q3

REPORT INFORMATION
  Report Type: Spontaneous
  Country: US (occurrence: US)
  Receive Date: 20160929
  Receipt Date: 20160929
  Transmission Date: 20161109
  Serious: No
  Sender: FDA-Public Use
  Company Number: US-HORIZON-PEN-0459-2016

PATIENT
  Sex: Female

DRUGS (3)
  1. PENNSAID [Suspect]
     Active Substance: DICLOFENAC SODIUM
     Indication: ARTHRALGIA
     Dosage: EVERY OTHER DAY AS NEEDED
     Dates: start: 201609
  2. TRAMADOL. [Concomitant]
     Active Substance: TRAMADOL
     Indication: ARTHRALGIA
  3. MULTAQ [Concomitant]
     Active Substance: DRONEDARONE
     Indication: CARDIAC DISORDER

REACTIONS (2)
  - Vomiting [Unknown]
  - Off label use [Unknown]

NARRATIVE: CASE EVENT DATE: 201609
